FAERS Safety Report 10272510 (Version 1)
Quarter: 2014Q2

REPORT INFORMATION
  Report Type: Spontaneous
  Country: None (occurrence: None)
  Receive Date: 20140630
  Receipt Date: 20140630
  Transmission Date: 20141212
  Serious: Yes (Disabling, Other)
  Sender: FDA-Public Use
  Company Number: None

PATIENT
  Age: 34 Year
  Sex: Female
  Weight: 66 kg

DRUGS (2)
  1. FACTIVE [Suspect]
     Indication: BRONCHITIS
     Dosage: 1 ONCE DAILY
     Route: 048
     Dates: start: 20140429, end: 20140508
  2. FACTIVE [Suspect]
     Indication: DRUG THERAPY
     Dosage: 1 ONCE DAILY
     Route: 048
     Dates: start: 20140429, end: 20140508

REACTIONS (4)
  - Dermatitis allergic [None]
  - Measles [None]
  - Hypersensitivity [None]
  - Rash generalised [None]
